FAERS Safety Report 9543049 (Version 1)
Quarter: 2013Q3

REPORT INFORMATION
  Report Type: Spontaneous
  Country: TW (occurrence: TW)
  Receive Date: 20130923
  Receipt Date: 20130923
  Transmission Date: 20140515
  Serious: Yes (Other)
  Sender: FDA-Public Use
  Company Number: PHHY2013TW102447

PATIENT
  Age: 67 Year
  Sex: Female

DRUGS (5)
  1. WARFARIN [Suspect]
     Indication: ANTICOAGULANT THERAPY
     Dosage: 2.5 MG, PER DAY
  2. WARFARIN [Interacting]
     Indication: THROMBOSIS PROPHYLAXIS
  3. MOXIFLOXACIN [Interacting]
     Indication: PNEUMONIA
     Dosage: 400 MG, PER DAY
  4. FUROSEMIDE [Concomitant]
     Dosage: 40 MG, PER DAY
  5. PANTOPRAZOLE [Concomitant]
     Dosage: 40 MG, PER DAY

REACTIONS (10)
  - Abdominal wall haematoma [Recovered/Resolved]
  - Peritoneal haemorrhage [Recovered/Resolved]
  - Haemorrhage [Recovered/Resolved]
  - Abdominal pain lower [Unknown]
  - Flank pain [Unknown]
  - Abdominal distension [Unknown]
  - Ecchymosis [Unknown]
  - Prothrombin time prolonged [Recovered/Resolved]
  - International normalised ratio increased [Recovered/Resolved]
  - Drug interaction [Unknown]
